FAERS Safety Report 16275232 (Version 1)
Quarter: 2019Q2

REPORT INFORMATION
  Report Type: Spontaneous
  Country: US (occurrence: US)
  Receive Date: 20190330
  Receipt Date: 20190330
  Transmission Date: 20190711
  Serious: Yes (Hospitalization)
  Sender: FDA-Public Use
  Company Number: None

PATIENT
  Age: 64 Year
  Sex: Male
  Weight: 79.4 kg

DRUGS (27)
  1. DOXORUBICIN HYDROCHLORIDE. [Suspect]
     Active Substance: DOXORUBICIN HYDROCHLORIDE
     Dates: end: 20160211
  2. RITUXIMAB (MOAB C2B8 ANTI CD20, CHIMERIC) [Suspect]
     Active Substance: RITUXIMAB
     Dates: end: 20160211
  3. DIBETA [Concomitant]
     Active Substance: DICLOFENAC SODIUM
  4. LOVENOX [Concomitant]
     Active Substance: ENOXAPARIN SODIUM
  5. METFORMIN [Concomitant]
     Active Substance: METFORMIN HYDROCHLORIDE
  6. ROBAXIN [Concomitant]
     Active Substance: METHOCARBAMOL
  7. DULCOLAX NOS [Concomitant]
     Active Substance: BISACODYL OR DOCUSATE SODIUM
  8. OXYCODONE [Concomitant]
     Active Substance: OXYCODONE
  9. CYCLOPHOSPHAMIDE. [Suspect]
     Active Substance: CYCLOPHOSPHAMIDE
     Dates: end: 20160211
  10. ALLOPURINOL. [Concomitant]
     Active Substance: ALLOPURINOL
  11. BENADRYL [Concomitant]
     Active Substance: DIPHENHYDRAMINE HYDROCHLORIDE
  12. METAMUCIL [Concomitant]
     Active Substance: PLANTAGO SEED
  13. PLAVIX [Concomitant]
     Active Substance: CLOPIDOGREL BISULFATE
  14. TRAZODONE [Concomitant]
     Active Substance: TRAZODONE HYDROCHLORIDE
  15. FENOFIBRIC ACID, CHOLINE [Concomitant]
  16. LEVOTHYROXINE SODIUM. [Concomitant]
     Active Substance: LEVOTHYROXINE SODIUM
  17. VENLAFAZINE [Concomitant]
  18. LIPITOR [Concomitant]
     Active Substance: ATORVASTATIN CALCIUM
  19. SODIUM CHLORIDE. [Concomitant]
     Active Substance: SODIUM CHLORIDE
  20. ZOFRAN [Concomitant]
     Active Substance: ONDANSETRON HYDROCHLORIDE
  21. COLLAGENASE SANTYL [Concomitant]
     Active Substance: COLLAGENASE CLOSTRIDIUM HISTOLYTICUM
  22. PREDNISONE. [Suspect]
     Active Substance: PREDNISONE
     Dates: end: 20160215
  23. VINCRISTINE SULFATE. [Suspect]
     Active Substance: VINCRISTINE SULFATE
     Dates: end: 20160211
  24. INVANZ [Concomitant]
     Active Substance: ERTAPENEM SODIUM
  25. LISINOPRIL. [Concomitant]
     Active Substance: LISINOPRIL
  26. NEURONTIN [Concomitant]
     Active Substance: GABAPENTIN
  27. HUMALOG [Concomitant]
     Active Substance: INSULIN LISPRO

REACTIONS (7)
  - Infection [None]
  - Pyrexia [None]
  - Hypotension [None]
  - Decubitus ulcer [None]
  - Sepsis [None]
  - Anaemia [None]
  - Paraplegia [None]

NARRATIVE: CASE EVENT DATE: 20160225
